FAERS Safety Report 12226388 (Version 1)
Quarter: 2016Q1

REPORT INFORMATION
  Report Type: Spontaneous
  Country: GB (occurrence: GB)
  Receive Date: 20160331
  Receipt Date: 20160331
  Transmission Date: 20160526
  Serious: Yes (Death, Life-Threatening, Hospitalization, Other)
  Sender: FDA-Public Use
  Company Number: GB-ASTRAZENECA-2016SE32210

PATIENT
  Age: 49 Year
  Sex: Female

DRUGS (2)
  1. INSULIN PORCINE [Concomitant]
     Active Substance: INSULIN DEFALAN (PORCINE)
  2. DAPAGLIFLOZIN [Suspect]
     Active Substance: DAPAGLIFLOZIN
     Indication: INSULIN-REQUIRING TYPE 2 DIABETES MELLITUS
     Route: 048

REACTIONS (1)
  - Ketoacidosis [Fatal]

NARRATIVE: CASE EVENT DATE: 20160214
